FAERS Safety Report 8826183 (Version 1)
Quarter: 2012Q4

REPORT INFORMATION
  Report Type: 
  Country: FR (occurrence: FR)
  Receive Date: 20121008
  Receipt Date: 20121008
  Transmission Date: 20130627
  Serious: Yes (Hospitalization, Other)
  Sender: FDA-Public Use
  Company Number: FR-ELI_LILLY_AND_COMPANY-FR201209007680

PATIENT

DRUGS (3)
  1. DULOXETINE HYDROCHLORIDE [Suspect]
  2. SULFAMETHOXAZOLE [Concomitant]
  3. TRIMETHOPRIM [Concomitant]

REACTIONS (2)
  - Dizziness [Unknown]
  - Drug hypersensitivity [Unknown]
